FAERS Safety Report 10214741 (Version 1)
Quarter: 2014Q1

REPORT INFORMATION
  Report Type: Spontaneous
  Country: US (occurrence: None)
  Receive Date: 20140306
  Receipt Date: 20140306
  Transmission Date: 20141002
  Serious: Yes (Other)
  Sender: FDA-Public Use
  Company Number: 163-21880-12091965

PATIENT
  Age: 65 Year
  Sex: Male
  Weight: 113.4 kg

DRUGS (22)
  1. REVLIMID (LENALIDOMIDE) (25 MILLIGRAM, CAPSULES) [Suspect]
     Indication: PLASMA CELL MYELOMA
     Dosage: 25 MG, 21 IN 28 D, PO
     Route: 048
     Dates: start: 20111114
  2. NYSTATIN (NYSTATIN) (CREAM) [Concomitant]
  3. ACYCLOVIR (ACICLOVIR) (CAPSULES) [Concomitant]
  4. ATIVAN (LORAZEPAM) (TABLETS) [Concomitant]
  5. DECADRON (DEXAMETHASONE) (TABLETS) [Concomitant]
  6. KLOR-CON (POTASSIUM CHLORIDE) (UNKNOWN) [Concomitant]
  7. LOVENOX (HEPARIN-FRACTION, SODIUM SALT) (INJECTION) [Concomitant]
  8. ZOMETA (ZOLEDRONIC ACID) (UNKNOWN) [Concomitant]
  9. MULTIVITAMINS (MULTIVITAMINS) (TABLETS) [Concomitant]
  10. ZOLOFT (SERTRALINE HYDROCHLORIDE) (TABLETS) [Concomitant]
  11. OSCAL (CALCIUM CARBONATE) (UNKNOWN) [Concomitant]
  12. VICODIN (VICODIN) (TABLETS) [Concomitant]
  13. BEANO (ALPHA-D-GALACTOSIDASE) (TABLETS) [Concomitant]
  14. CITRUCEL (METHYLCELLULOSE) (TABLETS) [Concomitant]
  15. PREVACID (LANSOPRAZOLE) (CAPSULES) [Concomitant]
  16. LIDOCAINE (LIDOCAINE) (POULTICE OR PATCH) [Concomitant]
  17. BIOFREEZE (ILEX PARAGUARIENSIS EXTRACT) (UNKNOWN) [Concomitant]
  18. PRILOSEC (OMEPRAZOLE) (CAPSULES) [Concomitant]
  19. CALCIUM 500 WITH VITAMIN D (LEKOVIT CA) (TABLETS) [Concomitant]
  20. POTASSIUM CHLORIDE (POTASSIUM CHLORIDE) (SUSTAINED-RELEASE CAPSULE) [Concomitant]
  21. PERCOCET (OXYCOCET) (UNKNOWN) [Concomitant]
  22. HYDROCODONE-ACETAMINOPHEN (PROCET /USA/) (TABLETS) [Concomitant]

REACTIONS (3)
  - Blood potassium decreased [None]
  - Lactose intolerance [None]
  - Diarrhoea [None]
